FAERS Safety Report 23353461 (Version 1)
Quarter: 2023Q4

REPORT INFORMATION
  Report Type: Spontaneous
  Country: JP (occurrence: JP)
  Receive Date: 20231231
  Receipt Date: 20231231
  Transmission Date: 20240110
  Serious: Yes (Hospitalization)
  Sender: FDA-Public Use
  Company Number: JP-BAYER-2023A185128

PATIENT
  Age: 59 Year
  Sex: Female

DRUGS (1)
  1. IOPROMIDE [Suspect]
     Active Substance: IOPROMIDE
     Indication: Computerised tomogram heart
     Dosage: 78 ML, ONCE
     Dates: start: 20231226, end: 20231226

REACTIONS (3)
  - Oxygen saturation decreased [Unknown]
  - Abdominal pain [Unknown]
  - Blood pressure decreased [Unknown]

NARRATIVE: CASE EVENT DATE: 20231226
